FAERS Safety Report 14963988 (Version 2)
Quarter: 2018Q2

REPORT INFORMATION
  Report Type: Spontaneous
  Country: JP (occurrence: JP)
  Receive Date: 20180601
  Receipt Date: 20180605
  Transmission Date: 20180711
  Serious: Yes (Other)
  Sender: FDA-Public Use
  Company Number: JP-PFIZER INC-2018096045

PATIENT
  Age: 35 Year
  Sex: Female
  Weight: 55 kg

DRUGS (4)
  1. GOREISAN /08015901/ [Suspect]
     Active Substance: HERBALS
     Indication: OEDEMA PERIPHERAL
     Dosage: UNK
     Dates: start: 20170906, end: 20180330
  2. SG /00076501/ [Concomitant]
     Indication: TENSION HEADACHE
     Dosage: UNK
     Dates: start: 20140714
  3. SODIUM VALPROATE [Concomitant]
     Active Substance: VALPROATE SODIUM
     Indication: MIGRAINE PROPHYLAXIS
     Dosage: UNK
     Dates: start: 20140714
  4. RELPAX [Suspect]
     Active Substance: ELETRIPTAN HYDROBROMIDE
     Indication: MIGRAINE
     Dosage: UNK
     Dates: start: 20140714

REACTIONS (4)
  - Skin discolouration [Not Recovered/Not Resolved]
  - Lip disorder [Not Recovered/Not Resolved]
  - Contusion [Not Recovered/Not Resolved]
  - Pigmentation disorder [Not Recovered/Not Resolved]

NARRATIVE: CASE EVENT DATE: 2017
